FAERS Safety Report 8604183-9 (Version None)
Quarter: 2012Q3

REPORT INFORMATION
  Report Type: 
  Country: None (occurrence: None)
  Receive Date: 20120820
  Receipt Date: 20120814
  Transmission Date: 20120928
  Serious: No
  Sender: FDA-Public Use
  Company Number: US-PFIZER INC-2012198798

PATIENT
  Age: 72 Year
  Sex: Male
  Weight: 120 kg

DRUGS (1)
  1. ADVIL [Suspect]
     Indication: RHEUMATOID ARTHRITIS
     Dosage: 200 MG, (THREE TO FOUR TIMES A DAY)
     Dates: start: 20120801

REACTIONS (1)
  - DRUG INEFFECTIVE [None]
